FAERS Safety Report 5818800-X (Version None)
Quarter: 2008Q3

REPORT INFORMATION
  Report Type: 
  Country: None (occurrence: None)
  Receive Date: 20080721
  Receipt Date: 20080721
  Transmission Date: 20090109
  Serious: No
  Sender: FDA-Public Use
  Company Number: None

PATIENT
  Age: 49 Year
  Sex: Male
  Weight: 72.5755 kg

DRUGS (2)
  1. ZICAM GEL SWABS MATRIXX [Suspect]
     Indication: NASOPHARYNGITIS
     Dosage: 1 NASAL SWAB 1 APPLICATION ENDOSINUSIA
     Route: 006
     Dates: start: 20080718, end: 20080718
  2. ZICAM GEL SWABS MATRIXX [Suspect]
     Indication: PROPHYLAXIS
     Dosage: 1 NASAL SWAB 1 APPLICATION ENDOSINUSIA
     Route: 006
     Dates: start: 20080718, end: 20080718

REACTIONS (2)
  - AGEUSIA [None]
  - ANOSMIA [None]
